FAERS Safety Report 6920380-2 (Version None)
Quarter: 2010Q3

REPORT INFORMATION
  Report Type: 
  Country: None (occurrence: None)
  Receive Date: 20100804
  Receipt Date: 20100201
  Transmission Date: 20110219
  Serious: No
  Sender: FDA-Public Use
  Company Number: 2010-0389

PATIENT
  Age: 40 Year

DRUGS (1)
  1. SOMATULINE DEPOT [Suspect]
     Indication: ACROMEGALY
     Dosage: 90 MG (90 MG, NOT REPORTED),SUBCUTANEOUS
     Route: 058
     Dates: start: 20100122

REACTIONS (2)
  - ABDOMINAL PAIN [None]
  - DIARRHOEA [None]
